FAERS Safety Report 23230911 (Version 1)
Quarter: 2023Q4

REPORT INFORMATION
  Report Type: Report from Study
  Country: IN (occurrence: None)
  Receive Date: 20231127
  Receipt Date: 20231127
  Transmission Date: 20240110
  Serious: Yes (Death, Hospitalization)
  Sender: FDA-Public Use
  Company Number: 2023A267810

PATIENT
  Age: 29748 Day
  Sex: Male

DRUGS (1)
  1. TAGRISSO [Suspect]
     Active Substance: OSIMERTINIB
     Indication: Non-small cell lung cancer
     Route: 048
     Dates: end: 20230823

REACTIONS (3)
  - Pyrexia [Unknown]
  - Respiration abnormal [Unknown]
  - Death [Fatal]

NARRATIVE: CASE EVENT DATE: 20230830
